FAERS Safety Report 9040185 (Version 1)
Quarter: 2013Q1

REPORT INFORMATION
  Report Type: Report from Study
  Country: US (occurrence: US)
  Receive Date: 20130129
  Receipt Date: 20130129
  Transmission Date: 20140127
  Serious: No
  Sender: FDA-Public Use
  Company Number: US-ABBOTT-12P-163-0899613-00

PATIENT
  Age: 43 Year
  Sex: Female
  Weight: 98.52 kg

DRUGS (6)
  1. HUMIRA 40 MG/0.8 ML PEN [Suspect]
     Indication: ANKYLOSING SPONDYLITIS
     Dates: start: 201112
  2. HUMIRA 40 MG/0.8 ML PEN [Suspect]
     Indication: CROHN^S DISEASE
  3. IBUPROFEN [Concomitant]
     Indication: ANKYLOSING SPONDYLITIS
  4. PERCOCET [Concomitant]
     Indication: ANKYLOSING SPONDYLITIS
  5. FLU SHOT [Concomitant]
     Indication: IMMUNISATION
     Dates: start: 2011, end: 2011
  6. PNEUMONIA VACCINE [Concomitant]
     Indication: IMMUNISATION
     Dates: start: 2011, end: 2011

REACTIONS (1)
  - Nasopharyngitis [Not Recovered/Not Resolved]
